FAERS Safety Report 8509849 (Version 2)
Quarter: 2013Q1

REPORT INFORMATION
  Report Type: Spontaneous
  Country: FR (occurrence: FR)
  Receive Date: 20120413
  Receipt Date: 20130130
  Transmission Date: 20140127
  Serious: Yes (Hospitalization, Disabling)
  Sender: FDA-Public Use
  Company Number: PHHY2012FR030908

PATIENT
  Age: 62 Year
  Sex: Female

DRUGS (1)
  1. ZOMETA [Suspect]
     Dosage: BIMONTHLY
     Dates: start: 2010

REACTIONS (2)
  - Osteonecrosis of jaw [Unknown]
  - Infection [Unknown]
